FAERS Safety Report 26158176 (Version 1)
Quarter: 2025Q4

REPORT INFORMATION
  Report Type: Spontaneous
  Country: US (occurrence: None)
  Receive Date: 20251215
  Receipt Date: 20251215
  Transmission Date: 20260118
  Serious: Yes (Disabling)
  Sender: FDA-CTU
  Company Number: None

PATIENT
  Age: 20 Year
  Sex: Male
  Weight: 63.45 kg

DRUGS (3)
  1. OTULFI [Suspect]
     Active Substance: USTEKINUMAB-AAUZ
     Indication: Crohn^s disease
     Dosage: OTHER FREQUENCY : EVERY 6 WEEKS;
     Route: 058
     Dates: start: 20250501, end: 20251208
  2. MESALAMINE [Concomitant]
     Active Substance: MESALAMINE
  3. STELARA [Concomitant]
     Active Substance: USTEKINUMAB
     Dates: start: 20221129, end: 20250501

REACTIONS (6)
  - Fall [None]
  - Seizure [None]
  - Rhabdomyolysis [None]
  - Acute kidney injury [None]
  - Liver injury [None]
  - Posterior reversible encephalopathy syndrome [None]

NARRATIVE: CASE EVENT DATE: 20251204
